FAERS Safety Report 19973415 (Version 1)
Quarter: 2021Q4

REPORT INFORMATION
  Report Type: Spontaneous
  Country: JP (occurrence: JP)
  Receive Date: 20211020
  Receipt Date: 20211020
  Transmission Date: 20220303
  Serious: Yes (Life-Threatening, Hospitalization, Other)
  Sender: FDA-Public Use
  Company Number: JP-TEVA-2021-JP-1966449

PATIENT
  Age: 85 Year
  Sex: Female

DRUGS (8)
  1. LANSOPRAZOLE [Interacting]
     Active Substance: LANSOPRAZOLE
     Indication: Product used for unknown indication
     Route: 065
  2. PREGABALIN [Suspect]
     Active Substance: PREGABALIN
     Indication: Product used for unknown indication
     Route: 065
  3. CALCIUM CHLORIDE\DEXTROSE MONOHYDRATE\MAGNESIUM CHLORIDE\POTASSIUM CHL [Suspect]
     Active Substance: CALCIUM CHLORIDE\DEXTROSE MONOHYDRATE\MAGNESIUM CHLORIDE\POTASSIUM CHLORIDE\SODIUM BICARBONATE\SODIU
     Indication: Haemodialysis
     Dosage: 35 MEQ/L
     Route: 065
  4. SODIUM FERROUS CITRATE [Interacting]
     Active Substance: SODIUM FERROUS CITRATE
     Indication: Product used for unknown indication
     Route: 065
  5. FEXOFENADINE HYDROCHLORIDE [Interacting]
     Active Substance: FEXOFENADINE HYDROCHLORIDE
     Indication: Product used for unknown indication
     Route: 065
  6. CLOPIDOGREL [Concomitant]
     Active Substance: CLOPIDOGREL BISULFATE
     Indication: Product used for unknown indication
     Route: 065
  7. AZILSARTAN KAMEDOXOMIL [Concomitant]
     Active Substance: AZILSARTAN KAMEDOXOMIL
     Indication: Product used for unknown indication
     Route: 065
  8. AROTINOLOL [Concomitant]
     Active Substance: AROTINOLOL
     Indication: Product used for unknown indication
     Route: 065

REACTIONS (5)
  - Hypercapnia [Recovering/Resolving]
  - Respiratory muscle weakness [Recovering/Resolving]
  - Drug interaction [Unknown]
  - Hypozincaemia [Recovering/Resolving]
  - Dyspnoea [Recovering/Resolving]
